FAERS Safety Report 7138015-5 (Version None)
Quarter: 2010Q4

REPORT INFORMATION
  Report Type: 
  Country: None (occurrence: None)
  Receive Date: 20101206
  Receipt Date: 20101124
  Transmission Date: 20110411
  Serious: Yes (Hospitalization)
  Sender: FDA-Public Use
  Company Number: FR-SANOFI-AVENTIS-2010SA071861

PATIENT
  Age: 74 Year
  Sex: Male

DRUGS (11)
  1. OXALIPLATIN [Suspect]
     Route: 042
     Dates: start: 20090909, end: 20090909
  2. OXALIPLATIN [Suspect]
     Route: 042
     Dates: start: 20100127, end: 20100127
  3. FLUOROURACIL [Suspect]
     Route: 042
     Dates: start: 20090909, end: 20090909
  4. FLUOROURACIL [Suspect]
     Route: 042
     Dates: start: 20100127, end: 20100127
  5. AVASTIN [Suspect]
     Route: 042
     Dates: start: 20090909, end: 20090909
  6. AVASTIN [Suspect]
     Route: 042
     Dates: start: 20100113, end: 20100113
  7. ALLOPURINOL [Concomitant]
  8. EUPANTOL [Concomitant]
  9. METEOSPASMYL [Concomitant]
  10. PRAVASTATIN [Concomitant]
  11. FERROUS SULFATE/SUCCINIC ACID [Concomitant]

REACTIONS (1)
  - ISCHAEMIC STROKE [None]
